APPROVED DRUG PRODUCT: ESMOLOL HYDROCHLORIDE DOUBLE STRENGTH IN PLASTIC CONTAINER
Active Ingredient: ESMOLOL HYDROCHLORIDE
Strength: 2GM/100ML (20MG/ML)
Dosage Form/Route: SOLUTION;INTRAVENOUS
Application: N205703 | Product #002
Applicant: HQ SPECIALTY PHARMA CORP
Approved: Apr 7, 2016 | RLD: Yes | RS: Yes | Type: RX

PATENTS:
Patent 8835505 | Expires: Mar 15, 2033
Patent 8829054 | Expires: Mar 15, 2033